FAERS Safety Report 6023590-4 (Version None)
Quarter: 2008Q4

REPORT INFORMATION
  Report Type: 
  Country: None (occurrence: None)
  Receive Date: 20081226
  Receipt Date: 20081226
  Transmission Date: 20090506
  Serious: Yes (Hospitalization, Other)
  Sender: FDA-Public Use
  Company Number: None

PATIENT
  Age: 55 Year
  Sex: Male
  Weight: 90.7194 kg

DRUGS (2)
  1. DEPAKOTE ER [Suspect]
     Dosage: DEPAKOTE ER 500 TAB 2 TABS AT BEDTIME PO
     Route: 048
     Dates: start: 20041023, end: 20080801
  2. NIASPAN EXTENDED RELEASE TAB 1000 MG ABBOTT [Suspect]
     Indication: BLOOD CHOLESTEROL INCREASED
     Dosage: NIASPAN ER 1,000 MG TAB ONCE IN EVENIN PO
     Route: 048
     Dates: start: 20081217, end: 20081223

REACTIONS (4)
  - DRUG HYPERSENSITIVITY [None]
  - INFLUENZA LIKE ILLNESS [None]
  - REACTION TO DRUG EXCIPIENTS [None]
  - THINKING ABNORMAL [None]
